FAERS Safety Report 7949864-5 (Version None)
Quarter: 2011Q4

REPORT INFORMATION
  Report Type: 
  Country: None (occurrence: None)
  Receive Date: 20111130
  Receipt Date: 20111129
  Transmission Date: 20120403
  Serious: No
  Sender: FDA-Public Use
  Company Number: US-BAYER-2011-114567

PATIENT
  Age: 53 Year
  Sex: Male

DRUGS (7)
  1. ULTRAVIST 150 [Suspect]
     Indication: ABDOMINAL PAIN UPPER
  2. VOLUMEN [Concomitant]
     Indication: COMPUTERISED TOMOGRAM ABDOMEN
     Dosage: UNK
     Route: 048
     Dates: start: 20111129, end: 20111129
  3. PENTASA [Concomitant]
  4. UROXATRAL [Concomitant]
  5. ULTRAVIST 150 [Suspect]
     Indication: COMPUTERISED TOMOGRAM ABDOMEN
     Dosage: 100 ML, ONCE
     Route: 042
     Dates: start: 20111129, end: 20111129
  6. AVODART [Concomitant]
  7. PRILOSEC [Concomitant]

REACTIONS (1)
  - URTICARIA [None]
